FAERS Safety Report 26114117 (Version 1)
Quarter: 2025Q4

REPORT INFORMATION
  Report Type: Spontaneous
  Country: EU (occurrence: EU)
  Receive Date: 20251202
  Receipt Date: 20251202
  Transmission Date: 20260118
  Serious: Yes (Hospitalization)
  Sender: MYLAN
  Company Number: None

PATIENT
  Age: 14 Year
  Sex: Female
  Weight: 68 kg

DRUGS (80)
  1. DEXAMETHASONE [Suspect]
     Active Substance: DEXAMETHASONE
     Indication: Anaesthesia
     Dosage: 8 MILLIGRAM, TOTAL
     Dates: start: 20240819, end: 20240819
  2. DEXAMETHASONE [Suspect]
     Active Substance: DEXAMETHASONE
     Dosage: 8 MILLIGRAM, TOTAL
     Route: 042
     Dates: start: 20240819, end: 20240819
  3. DEXAMETHASONE [Suspect]
     Active Substance: DEXAMETHASONE
     Dosage: 8 MILLIGRAM, TOTAL
     Route: 042
     Dates: start: 20240819, end: 20240819
  4. DEXAMETHASONE [Suspect]
     Active Substance: DEXAMETHASONE
     Dosage: 8 MILLIGRAM, TOTAL
     Dates: start: 20240819, end: 20240819
  5. MIDAZOLAM [Suspect]
     Active Substance: MIDAZOLAM
     Indication: Anaesthesia
     Dosage: 2 MILLIGRAM, TOTAL
     Dates: start: 20240819, end: 20240819
  6. MIDAZOLAM [Suspect]
     Active Substance: MIDAZOLAM
     Dosage: 2 MILLIGRAM, TOTAL
     Route: 042
     Dates: start: 20240819, end: 20240819
  7. MIDAZOLAM [Suspect]
     Active Substance: MIDAZOLAM
     Dosage: 2 MILLIGRAM, TOTAL
     Route: 042
     Dates: start: 20240819, end: 20240819
  8. MIDAZOLAM [Suspect]
     Active Substance: MIDAZOLAM
     Dosage: 2 MILLIGRAM, TOTAL
     Dates: start: 20240819, end: 20240819
  9. CISATRACURIUM [Suspect]
     Active Substance: CISATRACURIUM
     Indication: Anaesthesia
     Dosage: 10 MILLIGRAM, TOTAL
     Dates: start: 20240819, end: 20240819
  10. CISATRACURIUM [Suspect]
     Active Substance: CISATRACURIUM
     Dosage: 10 MILLIGRAM, TOTAL
     Route: 042
     Dates: start: 20240819, end: 20240819
  11. CISATRACURIUM [Suspect]
     Active Substance: CISATRACURIUM
     Dosage: 10 MILLIGRAM, TOTAL
     Route: 042
     Dates: start: 20240819, end: 20240819
  12. CISATRACURIUM [Suspect]
     Active Substance: CISATRACURIUM
     Dosage: 10 MILLIGRAM, TOTAL
     Dates: start: 20240819, end: 20240819
  13. SUFENTANIL [Suspect]
     Active Substance: SUFENTANIL
     Indication: Anaesthesia
     Dosage: 15 MICROGRAM, TOTAL
     Dates: start: 20240819, end: 20240819
  14. SUFENTANIL [Suspect]
     Active Substance: SUFENTANIL
     Dosage: 15 MICROGRAM, TOTAL
     Route: 042
     Dates: start: 20240819, end: 20240819
  15. SUFENTANIL [Suspect]
     Active Substance: SUFENTANIL
     Dosage: 15 MICROGRAM, TOTAL
     Route: 042
     Dates: start: 20240819, end: 20240819
  16. SUFENTANIL [Suspect]
     Active Substance: SUFENTANIL
     Dosage: 15 MICROGRAM, TOTAL
     Dates: start: 20240819, end: 20240819
  17. PROPOFOL [Suspect]
     Active Substance: PROPOFOL
     Indication: Anaesthesia
     Dosage: 20 MILLIGRAM, TOTAL
     Dates: start: 20240819, end: 20240819
  18. PROPOFOL [Suspect]
     Active Substance: PROPOFOL
     Dosage: 20 MILLIGRAM, TOTAL
     Route: 042
     Dates: start: 20240819, end: 20240819
  19. PROPOFOL [Suspect]
     Active Substance: PROPOFOL
     Dosage: 20 MILLIGRAM, TOTAL
     Route: 042
     Dates: start: 20240819, end: 20240819
  20. PROPOFOL [Suspect]
     Active Substance: PROPOFOL
     Dosage: 20 MILLIGRAM, TOTAL
     Dates: start: 20240819, end: 20240819
  21. KETAMINE [Suspect]
     Active Substance: KETAMINE
     Indication: Anaesthesia
     Dosage: 20 MILLIGRAM, TOTAL
     Dates: start: 20240819, end: 20240819
  22. KETAMINE [Suspect]
     Active Substance: KETAMINE
     Dosage: 20 MILLIGRAM, TOTAL
     Route: 042
     Dates: start: 20240819, end: 20240819
  23. KETAMINE [Suspect]
     Active Substance: KETAMINE
     Dosage: 20 MILLIGRAM, TOTAL
     Route: 042
     Dates: start: 20240819, end: 20240819
  24. KETAMINE [Suspect]
     Active Substance: KETAMINE
     Dosage: 20 MILLIGRAM, TOTAL
     Dates: start: 20240819, end: 20240819
  25. PRIMPERAN [Suspect]
     Active Substance: METOCLOPRAMIDE HYDROCHLORIDE
     Indication: Prophylaxis of nausea and vomiting
     Dosage: UNK
     Dates: start: 20240819, end: 20240822
  26. PRIMPERAN [Suspect]
     Active Substance: METOCLOPRAMIDE HYDROCHLORIDE
     Dosage: UNK
     Route: 048
     Dates: start: 20240819, end: 20240822
  27. PRIMPERAN [Suspect]
     Active Substance: METOCLOPRAMIDE HYDROCHLORIDE
     Dosage: UNK
     Route: 048
     Dates: start: 20240819, end: 20240822
  28. PRIMPERAN [Suspect]
     Active Substance: METOCLOPRAMIDE HYDROCHLORIDE
     Dosage: UNK
     Dates: start: 20240819, end: 20240822
  29. ACETAMINOPHEN\CODEINE PHOSPHATE [Suspect]
     Active Substance: ACETAMINOPHEN\CODEINE PHOSPHATE
     Indication: Pain
     Dosage: UNK
     Dates: start: 20240819, end: 20240822
  30. ACETAMINOPHEN\CODEINE PHOSPHATE [Suspect]
     Active Substance: ACETAMINOPHEN\CODEINE PHOSPHATE
     Dosage: UNK
     Route: 048
     Dates: start: 20240819, end: 20240822
  31. ACETAMINOPHEN\CODEINE PHOSPHATE [Suspect]
     Active Substance: ACETAMINOPHEN\CODEINE PHOSPHATE
     Dosage: UNK
     Route: 048
     Dates: start: 20240819, end: 20240822
  32. ACETAMINOPHEN\CODEINE PHOSPHATE [Suspect]
     Active Substance: ACETAMINOPHEN\CODEINE PHOSPHATE
     Dosage: UNK
     Dates: start: 20240819, end: 20240822
  33. TRAMADOL HYDROCHLORIDE [Suspect]
     Active Substance: TRAMADOL HYDROCHLORIDE
     Indication: Anaesthesia
     Dosage: UNK
     Dates: start: 20240819, end: 20240822
  34. TRAMADOL HYDROCHLORIDE [Suspect]
     Active Substance: TRAMADOL HYDROCHLORIDE
     Dosage: UNK
     Route: 048
     Dates: start: 20240819, end: 20240822
  35. TRAMADOL HYDROCHLORIDE [Suspect]
     Active Substance: TRAMADOL HYDROCHLORIDE
     Dosage: UNK
     Route: 048
     Dates: start: 20240819, end: 20240822
  36. TRAMADOL HYDROCHLORIDE [Suspect]
     Active Substance: TRAMADOL HYDROCHLORIDE
     Dosage: UNK
     Dates: start: 20240819, end: 20240822
  37. ACUPAN [Suspect]
     Active Substance: NEFOPAM HYDROCHLORIDE
     Indication: Pain
     Dosage: UNK
     Dates: start: 20240819, end: 20240822
  38. ACUPAN [Suspect]
     Active Substance: NEFOPAM HYDROCHLORIDE
     Dosage: UNK
     Route: 058
     Dates: start: 20240819, end: 20240822
  39. ACUPAN [Suspect]
     Active Substance: NEFOPAM HYDROCHLORIDE
     Dosage: UNK
     Route: 058
     Dates: start: 20240819, end: 20240822
  40. ACUPAN [Suspect]
     Active Substance: NEFOPAM HYDROCHLORIDE
     Dosage: UNK
     Dates: start: 20240819, end: 20240822
  41. SEVOFLURANE [Suspect]
     Active Substance: SEVOFLURANE
     Indication: Anaesthesia
     Dosage: UNK
     Dates: start: 20240819, end: 20240819
  42. SEVOFLURANE [Suspect]
     Active Substance: SEVOFLURANE
     Dosage: UNK
     Route: 042
     Dates: start: 20240819, end: 20240819
  43. SEVOFLURANE [Suspect]
     Active Substance: SEVOFLURANE
     Dosage: UNK
     Route: 042
     Dates: start: 20240819, end: 20240819
  44. SEVOFLURANE [Suspect]
     Active Substance: SEVOFLURANE
     Dosage: UNK
     Dates: start: 20240819, end: 20240819
  45. ROPIVACAINE HYDROCHLORIDE [Suspect]
     Active Substance: ROPIVACAINE HYDROCHLORIDE
     Indication: Anaesthesia
     Dosage: UNK
     Dates: start: 20240819, end: 20240819
  46. ROPIVACAINE HYDROCHLORIDE [Suspect]
     Active Substance: ROPIVACAINE HYDROCHLORIDE
     Dosage: UNK
     Route: 042
     Dates: start: 20240819, end: 20240819
  47. ROPIVACAINE HYDROCHLORIDE [Suspect]
     Active Substance: ROPIVACAINE HYDROCHLORIDE
     Dosage: UNK
     Route: 042
     Dates: start: 20240819, end: 20240819
  48. ROPIVACAINE HYDROCHLORIDE [Suspect]
     Active Substance: ROPIVACAINE HYDROCHLORIDE
     Dosage: UNK
     Dates: start: 20240819, end: 20240819
  49. DROPERIDOL [Suspect]
     Active Substance: DROPERIDOL
     Indication: Anaesthesia
     Dosage: 125 MILLIGRAM, TOTAL
     Dates: start: 20240819, end: 20240819
  50. DROPERIDOL [Suspect]
     Active Substance: DROPERIDOL
     Dosage: 125 MILLIGRAM, TOTAL
     Route: 042
     Dates: start: 20240819, end: 20240819
  51. DROPERIDOL [Suspect]
     Active Substance: DROPERIDOL
     Dosage: 125 MILLIGRAM, TOTAL
     Route: 042
     Dates: start: 20240819, end: 20240819
  52. DROPERIDOL [Suspect]
     Active Substance: DROPERIDOL
     Dosage: 125 MILLIGRAM, TOTAL
     Dates: start: 20240819, end: 20240819
  53. CEFAZOLIN SODIUM [Suspect]
     Active Substance: CEFAZOLIN SODIUM
     Indication: Antibiotic prophylaxis
     Dosage: 2 GRAM, TOTAL
     Dates: start: 20240819, end: 20240819
  54. CEFAZOLIN SODIUM [Suspect]
     Active Substance: CEFAZOLIN SODIUM
     Dosage: 2 GRAM, TOTAL
     Route: 042
     Dates: start: 20240819, end: 20240819
  55. CEFAZOLIN SODIUM [Suspect]
     Active Substance: CEFAZOLIN SODIUM
     Dosage: 2 GRAM, TOTAL
     Route: 042
     Dates: start: 20240819, end: 20240819
  56. CEFAZOLIN SODIUM [Suspect]
     Active Substance: CEFAZOLIN SODIUM
     Dosage: 2 GRAM, TOTAL
     Dates: start: 20240819, end: 20240819
  57. KETOPROFEN [Suspect]
     Active Substance: KETOPROFEN
     Indication: Antiinflammatory therapy
     Dosage: 100 MILLIGRAM, TOTAL
     Dates: start: 20240819, end: 20240819
  58. KETOPROFEN [Suspect]
     Active Substance: KETOPROFEN
     Dosage: 100 MILLIGRAM, TOTAL
     Route: 042
     Dates: start: 20240819, end: 20240819
  59. KETOPROFEN [Suspect]
     Active Substance: KETOPROFEN
     Dosage: 100 MILLIGRAM, TOTAL
     Route: 042
     Dates: start: 20240819, end: 20240819
  60. KETOPROFEN [Suspect]
     Active Substance: KETOPROFEN
     Dosage: 100 MILLIGRAM, TOTAL
     Dates: start: 20240819, end: 20240819
  61. NICARDIPINE HYDROCHLORIDE [Suspect]
     Active Substance: NICARDIPINE HYDROCHLORIDE
     Indication: Product used for unknown indication
     Dosage: 80 MILLIGRAM, TOTAL
     Dates: start: 20240819, end: 20240819
  62. NICARDIPINE HYDROCHLORIDE [Suspect]
     Active Substance: NICARDIPINE HYDROCHLORIDE
     Dosage: 80 MILLIGRAM, TOTAL
     Route: 048
     Dates: start: 20240819, end: 20240819
  63. NICARDIPINE HYDROCHLORIDE [Suspect]
     Active Substance: NICARDIPINE HYDROCHLORIDE
     Dosage: 80 MILLIGRAM, TOTAL
     Route: 048
     Dates: start: 20240819, end: 20240819
  64. NICARDIPINE HYDROCHLORIDE [Suspect]
     Active Substance: NICARDIPINE HYDROCHLORIDE
     Dosage: 80 MILLIGRAM, TOTAL
     Dates: start: 20240819, end: 20240819
  65. ONDANSETRON [Suspect]
     Active Substance: ONDANSETRON
     Indication: Prophylaxis of nausea and vomiting
     Dosage: 8 DOSAGE FORM, TOTAL
     Dates: start: 20240819, end: 20240819
  66. ONDANSETRON [Suspect]
     Active Substance: ONDANSETRON
     Dosage: 8 DOSAGE FORM, TOTAL
     Route: 042
     Dates: start: 20240819, end: 20240819
  67. ONDANSETRON [Suspect]
     Active Substance: ONDANSETRON
     Dosage: 8 DOSAGE FORM, TOTAL
     Route: 042
     Dates: start: 20240819, end: 20240819
  68. ONDANSETRON [Suspect]
     Active Substance: ONDANSETRON
     Dosage: 8 DOSAGE FORM, TOTAL
     Dates: start: 20240819, end: 20240819
  69. VOLTARENE (DICLOFENAC SODIUM) [Suspect]
     Active Substance: DICLOFENAC SODIUM
     Indication: Antiinflammatory therapy
     Dosage: UNK
     Dates: start: 20240819, end: 20240822
  70. VOLTARENE (DICLOFENAC SODIUM) [Suspect]
     Active Substance: DICLOFENAC SODIUM
     Dosage: UNK
     Route: 065
     Dates: start: 20240819, end: 20240822
  71. VOLTARENE (DICLOFENAC SODIUM) [Suspect]
     Active Substance: DICLOFENAC SODIUM
     Dosage: UNK
     Route: 065
     Dates: start: 20240819, end: 20240822
  72. VOLTARENE (DICLOFENAC SODIUM) [Suspect]
     Active Substance: DICLOFENAC SODIUM
     Dosage: UNK
     Dates: start: 20240819, end: 20240822
  73. OMEPRAZOLE [Suspect]
     Active Substance: OMEPRAZOLE
     Indication: Prophylaxis
     Dosage: UNK
     Dates: start: 20240819, end: 20240822
  74. OMEPRAZOLE [Suspect]
     Active Substance: OMEPRAZOLE
     Dosage: UNK
     Route: 048
     Dates: start: 20240819, end: 20240822
  75. OMEPRAZOLE [Suspect]
     Active Substance: OMEPRAZOLE
     Dosage: UNK
     Route: 048
     Dates: start: 20240819, end: 20240822
  76. OMEPRAZOLE [Suspect]
     Active Substance: OMEPRAZOLE
     Dosage: UNK
     Dates: start: 20240819, end: 20240822
  77. LOVENOX [Suspect]
     Active Substance: ENOXAPARIN SODIUM
     Indication: Anticoagulant therapy
     Dosage: UNK
     Dates: start: 20240819, end: 20240822
  78. LOVENOX [Suspect]
     Active Substance: ENOXAPARIN SODIUM
     Dosage: UNK
     Route: 058
     Dates: start: 20240819, end: 20240822
  79. LOVENOX [Suspect]
     Active Substance: ENOXAPARIN SODIUM
     Dosage: UNK
     Route: 058
     Dates: start: 20240819, end: 20240822
  80. LOVENOX [Suspect]
     Active Substance: ENOXAPARIN SODIUM
     Dosage: UNK
     Dates: start: 20240819, end: 20240822

REACTIONS (4)
  - Urinary retention [Recovered/Resolved]
  - Anuria [Recovered/Resolved]
  - Constipation [Recovered/Resolved]
  - Hepatic cytolysis [Recovered/Resolved]

NARRATIVE: CASE EVENT DATE: 20240819
